FAERS Safety Report 16835849 (Version 1)
Quarter: 2019Q3

REPORT INFORMATION
  Report Type: Spontaneous
  Country: JP (occurrence: JP)
  Receive Date: 20190920
  Receipt Date: 20190920
  Transmission Date: 20191005
  Serious: Yes (Hospitalization)
  Sender: FDA-Public Use
  Company Number: JP-009507513-1909JPN008135

PATIENT
  Age: 36 Year
  Sex: Female

DRUGS (14)
  1. EPERISONE HYDROCHLORIDE TOWA [Concomitant]
     Route: 048
  2. DICLOFENAC SODIUM TOWA [Concomitant]
     Route: 048
  3. LOXOPROFEN SODIUM KUNIHIRO [Concomitant]
     Route: 048
  4. ACELIO [Concomitant]
     Active Substance: ACETAMINOPHEN
  5. THEOPHYLLINE [Concomitant]
     Active Substance: THEOPHYLLINE ANHYDROUS
     Route: 048
  6. MOSAPRIDE CITRATE [Concomitant]
     Active Substance: MOSAPRIDE CITRATE
     Route: 048
  7. MEIACT MS [Concomitant]
     Active Substance: CEFDITOREN PIVOXIL
     Route: 048
  8. ASTHMOLYSIN [Concomitant]
     Route: 048
  9. TEPRENONE TOWA [Concomitant]
     Route: 048
  10. REBAMIPIDE [Concomitant]
     Active Substance: REBAMIPIDE
     Route: 048
  11. MONTELUKAST SODIUM. [Suspect]
     Active Substance: MONTELUKAST SODIUM
     Dosage: 10 MILLIGRAM, QD
     Route: 048
     Dates: start: 201810, end: 201811
  12. FLAVERIC [Concomitant]
     Active Substance: BENPROPERINE PHOSPHATE
     Route: 048
  13. CELESTAMINE [Concomitant]
     Active Substance: BETAMETHASONE\DEXCHLORPHENIRAMINE MALEATE
     Route: 048
  14. MEDICON (DEXTROMETHORPHAN HYDROBROMIDE) [Concomitant]
     Active Substance: DEXTROMETHORPHAN HYDROBROMIDE
     Route: 048

REACTIONS (1)
  - Drug eruption [Unknown]

NARRATIVE: CASE EVENT DATE: 2018
